FAERS Safety Report 20797601 (Version 3)
Quarter: 2022Q3

REPORT INFORMATION
  Report Type: Spontaneous
  Country: CZ (occurrence: CZ)
  Receive Date: 20220506
  Receipt Date: 20220914
  Transmission Date: 20221027
  Serious: Yes (Other)
  Sender: FDA-Public Use
  Company Number: CZ-NOVARTISPH-NVSC2022CZ103930

PATIENT
  Age: 56 Year
  Sex: Male

DRUGS (6)
  1. RIBOCICLIB [Suspect]
     Active Substance: RIBOCICLIB
     Indication: Breast cancer male
     Dosage: 600 MG, QD 1 X DAILY FOR THREE WEEKS WITH A WEEKLY BREAK - STANDARD TREATMENT REGIMEN 3 PLUS 1
     Route: 065
     Dates: start: 201712
  2. RIBOCICLIB [Suspect]
     Active Substance: RIBOCICLIB
     Dosage: 400 MG
     Route: 065
     Dates: start: 20190410
  3. RIBOCICLIB [Suspect]
     Active Substance: RIBOCICLIB
     Dosage: 200 MG
     Route: 065
     Dates: start: 20200923
  4. LETROZOLE [Suspect]
     Active Substance: LETROZOLE
     Indication: Breast cancer male
     Dosage: 2.5 MG, QD
     Route: 065
     Dates: start: 201712
  5. ZOLADEX [Suspect]
     Active Substance: GOSERELIN ACETATE
     Indication: Breast cancer male
     Dosage: 3.6 MG, QMO
     Route: 065
     Dates: start: 201712
  6. DENOSUMAB [Concomitant]
     Active Substance: DENOSUMAB
     Indication: Product used for unknown indication
     Dosage: 120 MG
     Route: 065

REACTIONS (3)
  - Granulocyte count decreased [Recovered/Resolved]
  - Transaminases increased [Recovered/Resolved]
  - Product use issue [Unknown]
